FAERS Safety Report 7239506-9 (Version None)
Quarter: 2011Q1

REPORT INFORMATION
  Report Type: 
  Country: None (occurrence: None)
  Receive Date: 20110121
  Receipt Date: 20110114
  Transmission Date: 20110831
  Serious: Yes (Other)
  Sender: FDA-Public Use
  Company Number: US-US-EMD SERONO, INC.-7036376

PATIENT
  Sex: Female

DRUGS (3)
  1. PREDNISONE [Concomitant]
     Dates: start: 20090517
  2. REBIF [Suspect]
     Route: 058
     Dates: start: 20101025
  3. REBIF [Suspect]
     Indication: MULTIPLE SCLEROSIS
     Dates: start: 20100101, end: 20100101

REACTIONS (2)
  - TONSILLECTOMY [None]
  - HEADACHE [None]
